FAERS Safety Report 9943690 (Version 2)
Quarter: 2014Q2

REPORT INFORMATION
  Report Type: Spontaneous
  Country: US (occurrence: US)
  Receive Date: 20140303
  Receipt Date: 20140626
  Transmission Date: 20141212
  Serious: Yes (Life-Threatening, Other)
  Sender: FDA-Public Use
  Company Number: US-MYLANLABS-2014S1004146

PATIENT
  Age: 58 Year
  Sex: Female
  Weight: 64.2 kg

DRUGS (13)
  1. CLOZAPINE TABLETS [Suspect]
     Indication: SCHIZOPHRENIA
  2. CLOZAPINE TABLETS [Suspect]
     Indication: PSYCHOTIC DISORDER
  3. CLOZAPINE TABLETS [Suspect]
     Indication: SCHIZOPHRENIA
  4. CLOZAPINE TABLETS [Suspect]
     Indication: PSYCHOTIC DISORDER
  5. CLOZAPINE TABLETS [Suspect]
     Indication: SCHIZOPHRENIA
     Dates: start: 20140206, end: 2014
  6. CLOZAPINE TABLETS [Suspect]
     Indication: PSYCHOTIC DISORDER
     Dates: start: 20140206, end: 2014
  7. CLOZAPINE TABLETS [Suspect]
     Indication: SCHIZOPHRENIA
     Dates: start: 20140206, end: 2014
  8. CLOZAPINE TABLETS [Suspect]
     Indication: PSYCHOTIC DISORDER
     Dates: start: 20140206, end: 2014
  9. LITHIUM [Concomitant]
  10. ATORVASTATIN [Concomitant]
  11. BENZATROPINE [Concomitant]
  12. LEVETIRACETAM [Concomitant]
  13. OLANZAPINE [Concomitant]

REACTIONS (3)
  - Agranulocytosis [Not Recovered/Not Resolved]
  - Granulocytopenia [Recovered/Resolved]
  - Leukopenia [Not Recovered/Not Resolved]
